FAERS Safety Report 6197208-4 (Version None)
Quarter: 2009Q2

REPORT INFORMATION
  Report Type: 
  Country: None (occurrence: None)
  Receive Date: 20090520
  Receipt Date: 20090504
  Transmission Date: 20091009
  Serious: Yes (Other)
  Sender: FDA-Public Use
  Company Number: IT-GENENTECH-270434

PATIENT

DRUGS (3)
  1. AVASTIN [Suspect]
     Indication: COLORECTAL CANCER
     Dosage: UNK
     Route: 065
  2. CAPECITABINE [Suspect]
     Indication: COLORECTAL CANCER
     Route: 065
  3. OXALIPLATIN [Suspect]
     Indication: COLORECTAL CANCER
     Route: 065

REACTIONS (1)
  - ANGINA PECTORIS [None]
